FAERS Safety Report 8811296 (Version 2)
Quarter: 2012Q4

REPORT INFORMATION
  Report Type: 
  Country: PT (occurrence: PT)
  Receive Date: 20120927
  Receipt Date: 20121030
  Transmission Date: 20130627
  Serious: Yes (Hospitalization)
  Sender: FDA-Public Use
  Company Number: PT-ELI_LILLY_AND_COMPANY-PT201209004819

PATIENT
  Age: 68 Year
  Sex: Male

DRUGS (1)
  1. ZYPREXA VELOTAB [Suspect]
     Indication: PSYCHOTIC DISORDER
     Dosage: 10 mg, single

REACTIONS (2)
  - Hypotension [Recovered/Resolved]
  - Syphilis [Unknown]
